FAERS Safety Report 9326319 (Version 4)
Quarter: 2013Q4

REPORT INFORMATION
  Report Type: Spontaneous
  Country: US (occurrence: US)
  Receive Date: 20130604
  Receipt Date: 20131016
  Transmission Date: 20140711
  Serious: Yes (Disabling, Other)
  Sender: FDA-Public Use
  Company Number: US-009507513-1306USA000766

PATIENT
  Age: 44 Year
  Sex: Male

DRUGS (5)
  1. REBETOL [Suspect]
     Indication: HEPATITIS C
     Dosage: UNK
     Dates: start: 20120101, end: 20121101
  2. REBETOL [Suspect]
     Dosage: UNK
     Route: 048
     Dates: start: 20130419, end: 20130805
  3. PEG-INTRON [Suspect]
     Indication: HEPATITIS C
     Dosage: VIAL, UNK
     Dates: start: 20130419, end: 20130805
  4. VICTRELIS [Suspect]
     Indication: HEPATITIS C
     Dosage: UNK
     Route: 048
     Dates: start: 20130517, end: 20130805
  5. PEGASYS [Suspect]
     Dosage: UNK
     Dates: start: 20120101, end: 20121101

REACTIONS (17)
  - Surgery [Unknown]
  - Disability [Not Recovered/Not Resolved]
  - Bipolar disorder [Unknown]
  - Depression [Not Recovered/Not Resolved]
  - Post-traumatic stress disorder [Unknown]
  - Hepatitis C [Unknown]
  - Injection site rash [Unknown]
  - Dysgeusia [Unknown]
  - Nervousness [Unknown]
  - Headache [Unknown]
  - Dizziness [Unknown]
  - Headache [Unknown]
  - Malaise [Unknown]
  - Nausea [Unknown]
  - Therapeutic response decreased [Unknown]
  - Drug ineffective [Unknown]
  - Drug ineffective [Unknown]
